FAERS Safety Report 4618152-7 (Version None)
Quarter: 2005Q1

REPORT INFORMATION
  Report Type: 
  Country: None (occurrence: None)
  Receive Date: 20050322
  Receipt Date: 20050309
  Transmission Date: 20050727
  Serious: Yes (Other)
  Sender: FDA-Public Use
  Company Number: 2005043345

PATIENT
  Sex: Female
  Weight: 83.9154 kg

DRUGS (1)
  1. DEPO-PROVERA [Suspect]
     Indication: DYSMENORRHOEA
     Dates: start: 19980101, end: 19980101

REACTIONS (3)
  - BLOOD GLUCOSE INCREASED [None]
  - DIABETES MELLITUS [None]
  - POLYMENORRHOEA [None]
